FAERS Safety Report 13759626 (Version 1)
Quarter: 2017Q3

REPORT INFORMATION
  Report Type: Spontaneous
  Country: US (occurrence: US)
  Receive Date: 20170717
  Receipt Date: 20170717
  Transmission Date: 20171127
  Serious: No
  Sender: FDA-Public Use
  Company Number: US-009507513-1707USA001551

PATIENT
  Age: 71 Year
  Sex: Female

DRUGS (12)
  1. SINEMET [Suspect]
     Active Substance: CARBIDOPA\LEVODOPA
     Dosage: 1 TABLET, Q4H (SIX TIMES DAILY)
     Route: 048
     Dates: start: 2011, end: 2012
  2. SINEMET [Suspect]
     Active Substance: CARBIDOPA\LEVODOPA
     Dosage: 1 TABLET, TID
     Route: 048
     Dates: start: 2012
  3. SINEMET [Suspect]
     Active Substance: CARBIDOPA\LEVODOPA
     Dosage: TAPERED DOWN OVER A MONTH
     Route: 048
  4. VALPROATE SODIUM (+) VALPROIC ACID [Concomitant]
     Indication: DEMENTIA
     Dosage: 500 MG, QD; DURING THE DAY
     Dates: start: 1999
  5. SINEMET [Suspect]
     Active Substance: CARBIDOPA\LEVODOPA
     Dosage: 1 TABLET, QID
     Route: 048
     Dates: start: 2010, end: 2011
  6. VENLAFAXINE HYDROCHLORIDE. [Concomitant]
     Active Substance: VENLAFAXINE HYDROCHLORIDE
     Indication: BIPOLAR I DISORDER
     Dosage: 225 MG, UNK; EXTENDED RELEASE
  7. DONEPEZIL. [Concomitant]
     Active Substance: DONEPEZIL
     Indication: DEMENTIA
     Dosage: 5 MG, UNK
  8. CLONAZEPAM. [Concomitant]
     Active Substance: CLONAZEPAM
     Dosage: 0.5 MG, HS (AT BEDTIME)
  9. VALPROATE SODIUM (+) VALPROIC ACID [Concomitant]
     Indication: BIPOLAR I DISORDER
     Dosage: 500 MG, BID
  10. CLONAZEPAM. [Concomitant]
     Active Substance: CLONAZEPAM
     Indication: BIPOLAR I DISORDER
     Dosage: 0.25 MG, QD (DURING THE DAY)
  11. SINEMET [Suspect]
     Active Substance: CARBIDOPA\LEVODOPA
     Indication: PARKINSONISM
     Dosage: 3 TABLETS, QD (A TOTAL DAILY DOSE OF 300 MG OF LEVODOPA)
     Route: 048
     Dates: start: 2007, end: 2010
  12. VALPROATE SODIUM (+) VALPROIC ACID [Concomitant]
     Dosage: 750 MG, HS (AT NIGHT)
     Dates: start: 1999

REACTIONS (2)
  - Hallucination, auditory [Recovered/Resolved]
  - Fatigue [Unknown]

NARRATIVE: CASE EVENT DATE: 2012
